FAERS Safety Report 24167828 (Version 1)
Quarter: 2024Q3

REPORT INFORMATION
  Report Type: Spontaneous
  Country: NL (occurrence: NL)
  Receive Date: 20240802
  Receipt Date: 20240802
  Transmission Date: 20241017
  Serious: Yes (Other)
  Sender: TEVA
  Company Number: None

PATIENT
  Age: 66 Year
  Sex: Female
  Weight: 69 kg

DRUGS (2)
  1. ATORVASTATIN [Suspect]
     Active Substance: ATORVASTATIN
     Indication: Cerebral infarction
     Dosage: BRAND NAME NOT SPECIFIED
     Route: 065
     Dates: start: 20180323
  2. FENTANYL [Concomitant]
     Active Substance: FENTANYL\FENTANYL CITRATE
     Indication: Product used for unknown indication
     Dosage: PLASTER, FENTANYL PLASTER / BRAND NAME NOT SPECIFIED
     Route: 065

REACTIONS (1)
  - Muscle rupture [Recovering/Resolving]
